FAERS Safety Report 4804380-4 (Version None)
Quarter: 2005Q4

REPORT INFORMATION
  Report Type: 
  Country: None (occurrence: None)
  Receive Date: 20051017
  Receipt Date: 20051005
  Transmission Date: 20060501
  Serious: Yes (Death)
  Sender: FDA-Public Use
  Company Number: 2005138754

PATIENT
  Age: 62 Year
  Sex: Female

DRUGS (5)
  1. CELEBRA (CELECOXIB) [Suspect]
     Indication: ARTHRALGIA
     Dosage: 400 MG (200 MG, 2 IN 1 D), ORAL
     Route: 048
     Dates: start: 20041022, end: 20050101
  2. DOLOL (TRAMADOL) [Concomitant]
  3. KODAMID (CAFFEINE, CODEINE PHOSPHATE, ETHALLOBARBITAL, OXYPHENISATINE, [Concomitant]
  4. IMOZOP (ZOPICLONE) [Concomitant]
  5. PROPRANOLOL [Concomitant]

REACTIONS (1)
  - CARDIAC ARREST [None]
